FAERS Safety Report 9665896 (Version 2)
Quarter: 2013Q4

REPORT INFORMATION
  Report Type: Spontaneous
  Country: US (occurrence: US)
  Receive Date: 20131104
  Receipt Date: 20131115
  Transmission Date: 20140711
  Serious: Yes (Death, Hospitalization, Other)
  Sender: FDA-Public Use
  Company Number: US-AMGEN-USASP2013077092

PATIENT
  Age: 83 Year
  Sex: Female

DRUGS (1)
  1. PROLIA [Suspect]
     Indication: OSTEOPOROSIS POSTMENOPAUSAL
     Dosage: UNK
     Route: 065
     Dates: start: 20120511

REACTIONS (13)
  - Renal failure [Unknown]
  - Cardiopulmonary failure [Unknown]
  - Cardiogenic shock [Unknown]
  - Acute respiratory failure [Unknown]
  - Neuropathy peripheral [Unknown]
  - Cardiac failure congestive [Unknown]
  - Cardiorenal syndrome [Unknown]
  - Dysphonia [Unknown]
  - Rheumatoid arthritis [Unknown]
  - Gastrooesophageal reflux disease [Unknown]
  - Death [Fatal]
  - Hypothyroidism [Unknown]
  - Anaemia [Unknown]
